FAERS Safety Report 23093717 (Version 2)
Quarter: 2024Q4

REPORT INFORMATION
  Report Type: Spontaneous
  Country: US (occurrence: US)
  Receive Date: 20231023
  Receipt Date: 20241113
  Transmission Date: 20250115
  Serious: Yes (Hospitalization, Other)
  Sender: CIPLA
  Company Number: US-CIPLA LTD.-2023US06485

PATIENT

DRUGS (1)
  1. BUPROPION [Suspect]
     Active Substance: BUPROPION
     Dosage: UNK, UNKNOWN AMOUNT OF BUPROPION TABLETS.
     Route: 048

REACTIONS (6)
  - Circulatory collapse [Recovered/Resolved]
  - Cardiogenic shock [Recovered/Resolved]
  - Myoclonus [Recovered/Resolved]
  - Intentional overdose [Unknown]
  - Cardiac arrest [Recovered/Resolved]
  - Dysarthria [Recovered/Resolved]
